FAERS Safety Report 15896585 (Version 1)
Quarter: 2019Q1

REPORT INFORMATION
  Report Type: Spontaneous
  Country: CA (occurrence: CA)
  Receive Date: 20190131
  Receipt Date: 20190131
  Transmission Date: 20190417
  Serious: Yes (Death, Hospitalization)
  Sender: FDA-Public Use
  Company Number: CA-ACTELION-A-NJ2019-185361

PATIENT
  Age: 52 Year
  Sex: Female

DRUGS (20)
  1. POTASSIUM [Concomitant]
     Active Substance: POTASSIUM
  2. DOLASETRON [Concomitant]
     Active Substance: DOLASETRON
     Dosage: UNK, PRN
  3. IMURAN [Concomitant]
     Active Substance: AZATHIOPRINE
  4. VITAMIN D [Concomitant]
     Active Substance: CHOLECALCIFEROL
  5. LYRICA [Concomitant]
     Active Substance: PREGABALIN
  6. MURACINE A.C. [Concomitant]
     Dosage: UNK, PRN
  7. PLAQUENIL [Concomitant]
     Active Substance: HYDROXYCHLOROQUINE SULFATE
  8. SYNTHROID [Concomitant]
     Active Substance: LEVOTHYROXINE SODIUM
  9. DOXIPAN [Concomitant]
  10. VITAMIN C [Concomitant]
     Active Substance: ASCORBIC ACID
  11. NORTRIPTYLINE [Concomitant]
     Active Substance: NORTRIPTYLINE
  12. TRACLEER [Suspect]
     Active Substance: BOSENTAN
     Indication: PULMONARY ARTERIAL HYPERTENSION
     Dosage: UNK
     Route: 048
     Dates: start: 20160419
  13. CALCIUM [Concomitant]
     Active Substance: CALCIUM
  14. OXYCONTIN [Concomitant]
     Active Substance: OXYCODONE HYDROCHLORIDE
  15. AMITRIPTYLINE [Concomitant]
     Active Substance: AMITRIPTYLINE
  16. REMODULIN [Concomitant]
     Active Substance: TREPROSTINIL
  17. LASIX [Concomitant]
     Active Substance: FUROSEMIDE
  18. OXYNEO [Concomitant]
     Active Substance: OXYCODONE
  19. DICLOFENAC [Concomitant]
     Active Substance: DICLOFENAC
  20. ALENDRONATE [Concomitant]
     Active Substance: ALENDRONATE SODIUM

REACTIONS (6)
  - Hyperhidrosis [Unknown]
  - Cardiac arrest [Unknown]
  - Malaise [Unknown]
  - Death [Fatal]
  - Pallor [Unknown]
  - Pulse abnormal [Unknown]

NARRATIVE: CASE EVENT DATE: 20190120
